FAERS Safety Report 7322469-5 (Version None)
Quarter: 2011Q1

REPORT INFORMATION
  Report Type: 
  Country: None (occurrence: None)
  Receive Date: 20110125
  Receipt Date: 20101020
  Transmission Date: 20110831
  Serious: No
  Sender: FDA-Public Use
  Company Number: US-003997

PATIENT
  Age: 43 Year
  Sex: Male
  Weight: 72.5755 kg

DRUGS (16)
  1. TAURINE [Concomitant]
  2. VITAMIN D [Concomitant]
  3. LORAZEPAM [Concomitant]
  4. FIRMAGON [Suspect]
     Indication: PROSTATE CANCER
     Dosage: (240 MG 1X SUBCUTANEOUS), (SUBCUTANEOUS)
     Route: 058
     Dates: start: 20101015
  5. FIRMAGON [Suspect]
     Indication: PROSTATE CANCER
     Dosage: (240 MG 1X SUBCUTANEOUS), (SUBCUTANEOUS)
     Route: 058
     Dates: start: 20101112
  6. ADVIL LIQUI-GELS [Concomitant]
  7. MAGNESIUM [Concomitant]
  8. HERBALS NOS W/VITAMINS NOS [Concomitant]
  9. GLUTAMINE [Concomitant]
  10. HYDROCORTISONE [Concomitant]
  11. FENTANYL [Concomitant]
  12. TURMERIC [Concomitant]
  13. IZOFRAN /00955301/ [Concomitant]
  14. CAPHOSOL [Concomitant]
  15. TAPENTADOL [Concomitant]
  16. PRILOSEC [Concomitant]

REACTIONS (4)
  - HOT FLUSH [None]
  - INJECTION SITE PAIN [None]
  - INJECTION SITE ERYTHEMA [None]
  - INSOMNIA [None]
